FAERS Safety Report 15784687 (Version 2)
Quarter: 2024Q2

REPORT INFORMATION
  Report Type: Spontaneous
  Country: US (occurrence: US)
  Receive Date: 20190103
  Receipt Date: 20240424
  Transmission Date: 20240716
  Serious: Yes (Other)
  Sender: FDA-Public Use
  Company Number: None

PATIENT
  Age: 28 Year
  Sex: Female

DRUGS (4)
  1. AZATHIOPRINE [Suspect]
     Active Substance: AZATHIOPRINE
     Indication: Immunosuppressant drug therapy
     Dosage: UNK
     Route: 065
  2. MYCOPHENOLATE MOFETIL [Suspect]
     Active Substance: MYCOPHENOLATE MOFETIL
     Indication: Immunosuppressant drug therapy
     Dosage: 750 MG, BID, (TARGET MPA AT LEAST 2.0)
     Route: 065
  3. TACROLIMUS [Suspect]
     Active Substance: TACROLIMUS
     Indication: Immunosuppressant drug therapy
     Dosage: 3 MG, BID, (TARGET TROUGH 8-10 NG/ML),
     Route: 065
  4. PREDNISONE [Suspect]
     Active Substance: PREDNISONE
     Indication: Immunosuppressant drug therapy
     Dosage: 10 MILLIGRAM, QD
     Route: 065

REACTIONS (7)
  - Thrombotic microangiopathy [Recovering/Resolving]
  - BK virus infection [Recovered/Resolved]
  - Transplant failure [Recovering/Resolving]
  - Transplant rejection [Recovering/Resolving]
  - Viraemia [Recovered/Resolved]
  - Diarrhoea [Recovered/Resolved]
  - Disease recurrence [Recovering/Resolving]
